FAERS Safety Report 13527002 (Version 2)
Quarter: 2017Q2

REPORT INFORMATION
  Report Type: Spontaneous
  Country: IT (occurrence: IT)
  Receive Date: 20170509
  Receipt Date: 20170518
  Transmission Date: 20170830
  Serious: Yes (Hospitalization)
  Sender: FDA-Public Use
  Company Number: PHHY2017IT063826

PATIENT
  Sex: Female

DRUGS (15)
  1. PLATELETS [Concomitant]
     Active Substance: HUMAN PLATELET, ALLOGENIC
     Dosage: 3 U, UNK
     Route: 065
     Dates: start: 201603
  2. ERYTHROCYTES [Concomitant]
     Active Substance: HUMAN RED BLOOD CELL
     Dosage: 1 U, UNK
     Route: 065
     Dates: start: 201512
  3. REVOLADE [Suspect]
     Active Substance: ELTROMBOPAG
     Dosage: 150 MG, UNK
     Route: 065
     Dates: start: 20151222
  4. PLATELETS [Concomitant]
     Active Substance: HUMAN PLATELET, ALLOGENIC
     Dosage: 2 U, UNK
     Route: 065
     Dates: start: 201601
  5. PLATELETS [Concomitant]
     Active Substance: HUMAN PLATELET, ALLOGENIC
     Indication: PRODUCT USED FOR UNKNOWN INDICATION
     Dosage: 5 U, UNK
     Route: 065
     Dates: start: 201510
  6. ERYTHROCYTES [Concomitant]
     Active Substance: HUMAN RED BLOOD CELL
     Dosage: 2 U, UNK
     Route: 065
     Dates: start: 201604
  7. REVOLADE [Suspect]
     Active Substance: ELTROMBOPAG
     Indication: PRODUCT USED FOR UNKNOWN INDICATION
     Dosage: 50 MG, QD
     Route: 065
     Dates: start: 20150903
  8. EXJADE [Suspect]
     Active Substance: DEFERASIROX
     Indication: PRODUCT USED FOR UNKNOWN INDICATION
     Dosage: 500 MG, QD
     Route: 065
     Dates: start: 20151112
  9. ERYTHROCYTES [Concomitant]
     Active Substance: HUMAN RED BLOOD CELL
     Dosage: 1 U, UNK
     Route: 065
     Dates: start: 201603
  10. PLATELETS [Concomitant]
     Active Substance: HUMAN PLATELET, ALLOGENIC
     Dosage: 4 U, UNK
     Route: 065
     Dates: start: 201512
  11. ERYTHROCYTES [Concomitant]
     Active Substance: HUMAN RED BLOOD CELL
     Indication: PRODUCT USED FOR UNKNOWN INDICATION
     Dosage: 1 U, UNK
     Route: 065
  12. CYCLOSPORIN [Suspect]
     Active Substance: CYCLOSPORINE
     Indication: PRODUCT USED FOR UNKNOWN INDICATION
     Dosage: UNK
     Route: 065
     Dates: start: 20150630
  13. PLATELETS [Concomitant]
     Active Substance: HUMAN PLATELET, ALLOGENIC
     Dosage: 2 U, UNK
     Route: 065
     Dates: start: 201606
  14. ERYTHROCYTES [Concomitant]
     Active Substance: HUMAN RED BLOOD CELL
     Dosage: 2 U, UNK
     Route: 065
     Dates: start: 201602
  15. ERYTHROCYTES [Concomitant]
     Active Substance: HUMAN RED BLOOD CELL
     Dosage: 1 U, UNK
     Route: 065
     Dates: start: 201606

REACTIONS (6)
  - Pneumonia pseudomonal [Unknown]
  - Blood creatinine increased [Unknown]
  - Lung consolidation [Unknown]
  - Sepsis [Unknown]
  - Gastric disorder [Unknown]
  - Respiratory failure [Unknown]

NARRATIVE: CASE EVENT DATE: 20150718
